FAERS Safety Report 7349502-9 (Version None)
Quarter: 2011Q1

REPORT INFORMATION
  Report Type: 
  Country: None (occurrence: None)
  Receive Date: 20110314
  Receipt Date: 20110222
  Transmission Date: 20110831
  Serious: No
  Sender: FDA-Public Use
  Company Number: US-ABBOTT-11P-163-0707356-00

PATIENT
  Sex: Female
  Weight: 56.75 kg

DRUGS (2)
  1. TREXAMET [Concomitant]
     Indication: MIGRAINE
     Dosage: AS NEEDED
     Route: 048
  2. DEPAKOTE [Suspect]
     Indication: MIGRAINE
     Route: 048
     Dates: start: 20101001

REACTIONS (2)
  - ALOPECIA [None]
  - TRICHORRHEXIS [None]
